FAERS Safety Report 4486402-6 (Version None)
Quarter: 2004Q4

REPORT INFORMATION
  Report Type: 
  Country: None (occurrence: None)
  Receive Date: 20041026
  Receipt Date: 20041026
  Transmission Date: 20050328
  Serious: Yes (Hospitalization)
  Sender: FDA-Public Use
  Company Number: None

PATIENT
  Age: 68 Year

DRUGS (14)
  1. CISPLATIN [Suspect]
     Indication: SMALL CELL LUNG CANCER LIMITED STAGE
     Dosage: 98.4 MG/99 MG
     Dates: start: 20040817
  2. CISPLATIN [Suspect]
     Indication: SMALL CELL LUNG CANCER LIMITED STAGE
     Dosage: 98.4 MG/99 MG
     Dates: start: 20040921
  3. ETOPOSIDE [Suspect]
     Dosage: 197 MG/198 MG
     Dates: start: 20040817
  4. ETOPOSIDE [Suspect]
     Dosage: 197 MG/198 MG
     Dates: start: 20040921
  5. RADIATION [Concomitant]
  6. AUGMENTIN '125' [Concomitant]
  7. FOSAMAX [Concomitant]
  8. LEVBID [Concomitant]
  9. CELEBREX [Concomitant]
  10. FOSINOPRIL SODIUM [Concomitant]
  11. BUSPAR [Concomitant]
  12. OMEPRAZOLE [Concomitant]
  13. LIPITOR [Concomitant]
  14. LEXAPRO [Concomitant]

REACTIONS (3)
  - CHILLS [None]
  - FEBRILE NEUTROPENIA [None]
  - HYPOAESTHESIA [None]
